FAERS Safety Report 6355658-7 (Version None)
Quarter: 2009Q3

REPORT INFORMATION
  Report Type: 
  Country: None (occurrence: None)
  Receive Date: 20090910
  Receipt Date: 20090827
  Transmission Date: 20100115
  Serious: Yes (Other)
  Sender: FDA-Public Use
  Company Number: ADR18572009

PATIENT
  Sex: Male

DRUGS (1)
  1. CABERGOLINE [Suspect]
     Dosage: 1 MG - 1/1 WEEK
     Dates: start: 20080101

REACTIONS (2)
  - CONDITION AGGRAVATED [None]
  - MITRAL VALVE DISEASE [None]
